FAERS Safety Report 4991494-1 (Version None)
Quarter: 2006Q2

REPORT INFORMATION
  Report Type: 
  Country: None (occurrence: None)
  Receive Date: 20060502
  Receipt Date: 20060417
  Transmission Date: 20061013
  Serious: Yes (Death, Life-Threatening, Other)
  Sender: FDA-Public Use
  Company Number: 2006BH008329

PATIENT
  Age: 67 Year
  Sex: Male

DRUGS (2)
  1. HEPARIN SODIUM [Suspect]
     Dosage: 10000 UNITS; IVBOL
     Route: 040
  2. HEPARIN SODIUM [Suspect]

REACTIONS (6)
  - CARDIAC ARREST [None]
  - DEEP VEIN THROMBOSIS [None]
  - GANGRENE [None]
  - HAEMORRHAGE INTRACRANIAL [None]
  - HEPARIN-INDUCED THROMBOCYTOPENIA [None]
  - HYPOCOAGULABLE STATE [None]
